FAERS Safety Report 6657026-7 (Version None)
Quarter: 2010Q1

REPORT INFORMATION
  Report Type: 
  Country: None (occurrence: None)
  Receive Date: 20100329
  Receipt Date: 20100329
  Transmission Date: 20100710
  Serious: Yes (Other)
  Sender: FDA-Public Use
  Company Number: None

PATIENT
  Age: 53 Year
  Sex: Female
  Weight: 66.2252 kg

DRUGS (1)
  1. PROAIR HFA [Suspect]
     Dosage: Q4 ? INHALER
     Dates: start: 20100322

REACTIONS (4)
  - DEVICE FAILURE [None]
  - FOREIGN BODY [None]
  - LARYNGEAL OBSTRUCTION [None]
  - WRONG TECHNIQUE IN DRUG USAGE PROCESS [None]
